FAERS Safety Report 17437541 (Version 4)
Quarter: 2020Q1

REPORT INFORMATION
  Report Type: Report from Study
  Country: CA (occurrence: CA)
  Receive Date: 20200219
  Receipt Date: 20200327
  Transmission Date: 20200409
  Serious: Yes (Hospitalization)
  Sender: FDA-Public Use
  Company Number: CA-ACTELION-A-NJ2020-201035

PATIENT
  Age: 83 Year
  Sex: Female

DRUGS (12)
  1. MOVANTIK [Concomitant]
     Active Substance: NALOXEGOL OXALATE
  2. HYDROXYCHLOROQUINE [Concomitant]
     Active Substance: HYDROXYCHLOROQUINE
  3. TRACLEER [Suspect]
     Active Substance: BOSENTAN
     Indication: PULMONARY ARTERIAL HYPERTENSION
     Dosage: 62.5 MG
     Route: 048
     Dates: start: 20200120
  4. TRACLEER [Suspect]
     Active Substance: BOSENTAN
     Dosage: 125 MG
     Route: 048
  5. ROSUVASTATIN. [Concomitant]
     Active Substance: ROSUVASTATIN
  6. METOPROLOL. [Concomitant]
     Active Substance: METOPROLOL
  7. XARELTO [Concomitant]
     Active Substance: RIVAROXABAN
  8. LORAZEPAM. [Concomitant]
     Active Substance: LORAZEPAM
  9. ADCIRCA [Concomitant]
     Active Substance: TADALAFIL
  10. NUCYNTA [Concomitant]
     Active Substance: TAPENTADOL HYDROCHLORIDE
  11. CANDESARTAN. [Concomitant]
     Active Substance: CANDESARTAN
  12. FUROSEMIDE. [Concomitant]
     Active Substance: FUROSEMIDE

REACTIONS (18)
  - Palpitations [Not Recovered/Not Resolved]
  - Dizziness [Not Recovered/Not Resolved]
  - Hot flush [Not Recovered/Not Resolved]
  - Renal disorder [Recovering/Resolving]
  - Malaise [Not Recovered/Not Resolved]
  - Adverse drug reaction [Unknown]
  - Joint swelling [Not Recovered/Not Resolved]
  - Peripheral swelling [Not Recovered/Not Resolved]
  - Nausea [Not Recovered/Not Resolved]
  - Dysstasia [Recovering/Resolving]
  - Dyspnoea [Not Recovered/Not Resolved]
  - Hypotension [Not Recovered/Not Resolved]
  - Restlessness [Not Recovered/Not Resolved]
  - Pulmonary oedema [Recovering/Resolving]
  - Cystitis [Unknown]
  - Weight increased [Not Recovered/Not Resolved]
  - Erythema [Unknown]
  - Decreased appetite [Not Recovered/Not Resolved]

NARRATIVE: CASE EVENT DATE: 20200120
